FAERS Safety Report 24378884 (Version 3)
Quarter: 2024Q4

REPORT INFORMATION
  Report Type: Spontaneous
  Country: US (occurrence: US)
  Receive Date: 20240930
  Receipt Date: 20241023
  Transmission Date: 20250115
  Serious: Yes (Hospitalization, Other)
  Sender: ALKEM
  Company Number: US-ALKEM LABORATORIES LIMITED-US-ALKEM-2024-22168

PATIENT
  Age: 66 Year
  Sex: Male

DRUGS (4)
  1. MYCOPHENOLATE MOFETIL [Suspect]
     Active Substance: MYCOPHENOLATE MOFETIL
     Indication: Immunosuppressant drug therapy
     Dosage: 500 MILLIGRAM, BID, (EVERY 12 HOUR)
     Route: 065
  2. TACROLIMUS [Interacting]
     Active Substance: TACROLIMUS
     Indication: Immunosuppressant drug therapy
     Dosage: 1.5 MILLIGRAM, BID, (EVERY 12 HOUR)
     Route: 065
  3. NIRMATRELVIR\RITONAVIR [Interacting]
     Active Substance: NIRMATRELVIR\RITONAVIR
     Indication: COVID-19
     Dosage: 150 MILLIGRAM/100 MILLIGRAM, BID, (EVERY 12 HOURS), 4 DOSAGE FORM
     Route: 065
  4. PREDNISONE [Suspect]
     Active Substance: PREDNISONE
     Indication: Immunosuppressant drug therapy
     Dosage: 5 MILLIGRAM, QD
     Route: 065

REACTIONS (12)
  - Acute kidney injury [Unknown]
  - Drug level increased [Recovered/Resolved]
  - Acute kidney injury [Unknown]
  - Oesophageal ulcer [Unknown]
  - Herpes simplex [Unknown]
  - Toxicity to various agents [Recovered/Resolved]
  - Drug interaction [Unknown]
  - Diarrhoea [Unknown]
  - Labelled drug-drug interaction medication error [Unknown]
  - Sepsis [Unknown]
  - Gastrointestinal toxicity [Unknown]
  - COVID-19 [Unknown]
